FAERS Safety Report 9377576 (Version 1)
Quarter: 2013Q3

REPORT INFORMATION
  Report Type: Spontaneous
  Country: US (occurrence: US)
  Receive Date: 20130701
  Receipt Date: 20130701
  Transmission Date: 20140515
  Serious: No
  Sender: FDA-Public Use
  Company Number: US-009507513-1307USA000458

PATIENT
  Sex: 0

DRUGS (2)
  1. LOTRIMIN AF JOCK ITCH [Suspect]
     Indication: TINEA CRURIS
     Dosage: UNK, BID
     Route: 061
  2. LOTRIMIN AF JOCK ITCH [Suspect]
     Indication: MEDICAL OBSERVATION

REACTIONS (1)
  - Therapeutic product ineffective [Unknown]
